FAERS Safety Report 5984816-6 (Version None)
Quarter: 2008Q4

REPORT INFORMATION
  Report Type: 
  Country: None (occurrence: None)
  Receive Date: 20081202
  Receipt Date: 20081120
  Transmission Date: 20090506
  Serious: Yes (Death, Other)
  Sender: FDA-Public Use
  Company Number: 2007-04042

PATIENT
  Age: 67 Year
  Sex: Male
  Weight: 55 kg

DRUGS (10)
  1. VELCADE [Suspect]
     Indication: MULTIPLE MYELOMA
     Dosage: 2.00 MG, INTRAVENOUS
     Route: 042
     Dates: start: 20071120, end: 20071123
  2. DEXAMETHASONE [Concomitant]
  3. ALLOPURINOL [Concomitant]
  4. BERIZYM (ENZYMES NOS) [Concomitant]
  5. FAMOTIDINE [Concomitant]
  6. MEILAX (ETHYL LOFLAZEPATE) [Concomitant]
  7. PELTAZON (PENAZOCINE) [Concomitant]
  8. DIGOXIN [Concomitant]
  9. WARFARIN SODIUM [Concomitant]
  10. BEPRICOR (BEPRIDIL) [Concomitant]

REACTIONS (10)
  - ANAEMIA [None]
  - C-REACTIVE PROTEIN INCREASED [None]
  - DELIRIUM [None]
  - DEMENTIA [None]
  - DISEASE PROGRESSION [None]
  - INFECTION [None]
  - PLATELET COUNT DECREASED [None]
  - THROMBOSIS [None]
  - TREATMENT NONCOMPLIANCE [None]
  - WHITE BLOOD CELL COUNT DECREASED [None]
